FAERS Safety Report 17246913 (Version 1)
Quarter: 2020Q1

REPORT INFORMATION
  Report Type: Spontaneous
  Country: US (occurrence: US)
  Receive Date: 20200108
  Receipt Date: 20200108
  Transmission Date: 20200409
  Serious: No
  Sender: FDA-Public Use
  Company Number: US-PFIZER INC-2020004689

PATIENT
  Age: 73 Year
  Sex: Female

DRUGS (1)
  1. IBRANCE [Suspect]
     Active Substance: PALBOCICLIB
     Dosage: 100 MG, CYCLIC,[100MG 28 DAY SUPPLY, TAKE 100 MG BY MOUTH DAILY.^X3]
     Route: 048
     Dates: start: 20190928

REACTIONS (1)
  - Neoplasm progression [Unknown]
